FAERS Safety Report 5502942-2 (Version None)
Quarter: 2007Q4

REPORT INFORMATION
  Report Type: 
  Country: None (occurrence: None)
  Receive Date: 20071031
  Receipt Date: 20071026
  Transmission Date: 20080405
  Serious: Yes (Hospitalization)
  Sender: FDA-Public Use
  Company Number: B0491772A

PATIENT
  Age: 51 Year
  Sex: Female

DRUGS (5)
  1. REQUIP [Suspect]
     Indication: PARKINSONISM
     Dosage: .5MG THREE TIMES PER DAY
     Route: 048
     Dates: start: 20070928, end: 20071001
  2. SYMMETREL [Suspect]
     Indication: PARKINSONISM
     Dosage: 50MG THREE TIMES PER DAY
     Route: 048
     Dates: start: 20070922, end: 20071001
  3. EXCEGRAN [Suspect]
     Indication: PARKINSONISM
     Dosage: 100MG PER DAY
     Route: 048
     Dates: start: 20070920, end: 20071001
  4. CABERGOLINE [Concomitant]
     Indication: PARKINSONISM
     Dosage: .5MG PER DAY
     Route: 048
  5. NEODOPASTON [Concomitant]
     Indication: PARKINSONISM
     Dosage: 50MG SIX TIMES PER DAY
     Route: 048

REACTIONS (7)
  - ANXIETY [None]
  - DELUSION [None]
  - HALLUCINATION [None]
  - HYPERTONIA [None]
  - HYPERVENTILATION [None]
  - IRRITABILITY [None]
  - PARANOIA [None]
